FAERS Safety Report 8791003 (Version 1)
Quarter: 2012Q4

REPORT INFORMATION
  Report Type: Spontaneous
  Country: US (occurrence: None)
  Receive Date: 20120907
  Receipt Date: 20120907
  Transmission Date: 20130627
  Serious: Yes (Hospitalization)
  Sender: FDA-Public Use
  Company Number: 2012GMK003339

PATIENT
  Sex: Female

DRUGS (6)
  1. MELOXICAM [Suspect]
     Indication: DRUG USE FOR UNKNOWN INDICATION
     Dates: start: 20120620
  2. LEVOTHYROXINE [Concomitant]
  3. MORPHINE (MORPHINE) [Concomitant]
  4. WELLBUTRIN (BUPROPION HYDROCHLORIDE) [Concomitant]
  5. ZOLOFT (SERTRALINE HYDROCHLORIDE) [Concomitant]
  6. ATENOLOL (ATENOLOL) [Concomitant]

REACTIONS (2)
  - Epistaxis [None]
  - Platelet count increased [None]
